FAERS Safety Report 10511391 (Version 3)
Quarter: 2014Q4

REPORT INFORMATION
  Report Type: Spontaneous
  Country: CA (occurrence: CA)
  Receive Date: 20141010
  Receipt Date: 20141016
  Transmission Date: 20150528
  Serious: Yes (Other)
  Sender: FDA-Public Use
  Company Number: CA-PFIZER INC-2014276065

PATIENT
  Age: 82 Year
  Sex: Male
  Weight: 58 kg

DRUGS (17)
  1. AMIODARONE HCL [Suspect]
     Active Substance: AMIODARONE HYDROCHLORIDE
     Indication: VENTRICULAR TACHYCARDIA
     Dosage: 12000 MG OVER 3 WEEKS (LOADING DOSE)
     Route: 048
     Dates: start: 201110
  2. AMIODARONE HYDROCHLORIDE. [Interacting]
     Active Substance: AMIODARONE HYDROCHLORIDE
     Dosage: 1050 MG, FIRST DAY
     Route: 042
     Dates: start: 201110, end: 201110
  3. ROSUVASTATIN [Concomitant]
     Active Substance: ROSUVASTATIN
     Dosage: UNK
  4. TAMSULOSIN [Concomitant]
     Active Substance: TAMSULOSIN
     Dosage: UNK
  5. ATAZANAVIR [Interacting]
     Active Substance: ATAZANAVIR
     Dosage: 400 MG, DAILY
     Route: 065
     Dates: start: 2011
  6. ENALAPRIL [Concomitant]
     Active Substance: ENALAPRIL
     Dosage: UNK
  7. RALTEGRAVIR [Concomitant]
     Active Substance: RALTEGRAVIR
     Indication: HIV INFECTION
     Dosage: 400 MG, 2X/DAY
  8. SULFAMETHOXAZOLE/TRIMETHOPRIM [Concomitant]
     Dosage: UNK
  9. ASPIRIN. [Concomitant]
     Active Substance: ASPIRIN
     Dosage: UNK
  10. FINASTERIDE. [Concomitant]
     Active Substance: FINASTERIDE
     Dosage: UNK
  11. ABACAVIR/LAMIVUDINE [Concomitant]
     Indication: HIV INFECTION
     Dosage: 600/300 MG ONCE DAILY
  12. TENOFOVIR [Suspect]
     Active Substance: TENOFOVIR
     Indication: HIV INFECTION
     Dosage: 300 MG, 1X/DAY
     Dates: start: 2011
  13. LAMIVUDINE/ZIDOVUDINE [Concomitant]
     Indication: HIV INFECTION
     Dosage: 150/300 MG TWICE DAILY
     Dates: start: 200605
  14. ATENOLOL. [Concomitant]
     Active Substance: ATENOLOL
     Dosage: UNK
  15. AMIODARONE HCL [Interacting]
     Active Substance: AMIODARONE HYDROCHLORIDE
     Dosage: 200 MG, DAILY
     Route: 048
  16. ATAZANAVIR [Interacting]
     Active Substance: ATAZANAVIR
     Indication: HIV INFECTION
     Dosage: 300 MG, 1X/DAY
     Route: 065
     Dates: start: 200605, end: 201110
  17. RITONAVIR. [Concomitant]
     Active Substance: RITONAVIR
     Indication: HIV INFECTION
     Dosage: 100 MG, 1X/DAY
     Dates: start: 2006

REACTIONS (3)
  - Renal impairment [Unknown]
  - Drug interaction [Recovered/Resolved]
  - Drug level increased [Recovered/Resolved]

NARRATIVE: CASE EVENT DATE: 2011
